FAERS Safety Report 8510525-5 (Version None)
Quarter: 2012Q3

REPORT INFORMATION
  Report Type: 
  Country: None (occurrence: None)
  Receive Date: 20120716
  Receipt Date: 20120703
  Transmission Date: 20120928
  Serious: Yes (Hospitalization, Other)
  Sender: FDA-Public Use
  Company Number: DE-AMGEN-DEUSP2012042212

PATIENT
  Age: 73 Year
  Sex: Female

DRUGS (3)
  1. ENBREL [Suspect]
     Indication: ANKYLOSING SPONDYLITIS
     Dosage: 50 MG, WEEKLY
     Dates: start: 20090727
  2. DICLOFENAC SODIUM [Concomitant]
     Dosage: THREE TIMES DAILY
  3. IBUPROFEN [Concomitant]
     Dosage: 800 (UNITS NOT PROVIDED), AS NEEDED

REACTIONS (2)
  - IMPAIRED HEALING [None]
  - SKIN CANCER [None]
